FAERS Safety Report 4508937-X (Version None)
Quarter: 2004Q4

REPORT INFORMATION
  Report Type: 
  Country: None (occurrence: None)
  Receive Date: 20041123
  Receipt Date: 20041029
  Transmission Date: 20050328
  Serious: Yes (Death)
  Sender: FDA-Public Use
  Company Number: HCM-0039

PATIENT
  Age: 71 Year
  Sex: Female

DRUGS (8)
  1. HYCAMTIN [Suspect]
     Indication: SMALL CELL LUNG CANCER STAGE UNSPECIFIED
     Dosage: 1Z UNKNOWN
     Route: 042
     Dates: start: 20040402, end: 20040406
  2. FENTANYL [Suspect]
     Indication: ANALGESIC THERAPY
     Dosage: 5MG SEE DOSAGE TEXT
     Route: 062
     Dates: start: 20040329, end: 20040404
  3. BETAMETHASONE [Concomitant]
     Indication: ADRENOCORTICAL STEROID THERAPY
     Dosage: 8MG PER DAY
     Route: 042
     Dates: start: 20040402, end: 20040406
  4. FAMOTIDINE [Concomitant]
     Dosage: 40MG PER DAY
     Route: 042
     Dates: start: 20040329
  5. PROCHLORPERAZINE MESYLATE [Concomitant]
     Dosage: 10MG PER DAY
     Route: 042
     Dates: start: 20040401, end: 20040409
  6. TULOBUTEROL [Concomitant]
     Indication: INHALATION THERAPY
     Dosage: 2MG PER DAY
     Route: 062
     Dates: start: 20040329
  7. MORPHINE HYDROCHLORIDE [Concomitant]
     Indication: ANALGESIC THERAPY
     Dosage: 10MG PER DAY
     Route: 065
     Dates: start: 20040402, end: 20040402
  8. UNKNOWN DRUG [Concomitant]
     Route: 042

REACTIONS (11)
  - CHILLS [None]
  - DEPRESSED LEVEL OF CONSCIOUSNESS [None]
  - DISEASE PROGRESSION [None]
  - HYPOCALCAEMIA [None]
  - HYPONATRAEMIA [None]
  - LUNG NEOPLASM MALIGNANT [None]
  - MALIGNANT NEOPLASM PROGRESSION [None]
  - MENINGEAL NEOPLASM [None]
  - MENINGITIS [None]
  - METASTASES TO MENINGES [None]
  - SOMNOLENCE [None]
